FAERS Safety Report 9481299 (Version 1)
Quarter: 2013Q3

REPORT INFORMATION
  Report Type: Spontaneous
  Country: US (occurrence: US)
  Receive Date: 20130828
  Receipt Date: 20130828
  Transmission Date: 20140515
  Serious: Yes (Death, Hospitalization)
  Sender: FDA-Public Use
  Company Number: US-AMGEN-KDL159005

PATIENT
  Age: 61 Year
  Sex: Male

DRUGS (2)
  1. ENBREL [Suspect]
     Indication: RHEUMATOID ARTHRITIS
     Dosage: 25 MG, 2 TIMES/WK
     Route: 058
     Dates: start: 20010401
  2. METHOTREXATE [Concomitant]
     Dosage: UNK UNK, UNK

REACTIONS (8)
  - Death [Fatal]
  - Cardiac disorder [Unknown]
  - Herpes virus infection [Unknown]
  - Lung infection [Unknown]
  - Pancreatitis [Unknown]
  - Hepatitis [Unknown]
  - Gastrointestinal necrosis [Unknown]
  - Dialysis [Unknown]
